FAERS Safety Report 16233056 (Version 3)
Quarter: 2019Q2

REPORT INFORMATION
  Report Type: Spontaneous
  Country: US (occurrence: US)
  Receive Date: 20190424
  Receipt Date: 20190530
  Transmission Date: 20190711
  Serious: No
  Sender: FDA-Public Use
  Company Number: US-PFIZER INC-2019169183

PATIENT
  Age: 18 Year
  Sex: Female

DRUGS (1)
  1. METHOTREXATE SODIUM. [Suspect]
     Active Substance: METHOTREXATE SODIUM
     Dosage: UNK

REACTIONS (6)
  - Fatigue [Unknown]
  - Alopecia [Unknown]
  - Drug intolerance [Unknown]
  - Treatment failure [Unknown]
  - Contraindicated product administered [Unknown]
  - Nausea [Unknown]

NARRATIVE: CASE EVENT DATE: 2012
